FAERS Safety Report 9376609 (Version 1)
Quarter: 2013Q3

REPORT INFORMATION
  Report Type: Spontaneous
  Country: US (occurrence: US)
  Receive Date: 20130701
  Receipt Date: 20130701
  Transmission Date: 20140515
  Serious: Yes (Hospitalization, Other)
  Sender: FDA-Public Use
  Company Number: US-AMGEN-USASP2013045445

PATIENT
  Age: 61 Year
  Sex: Male

DRUGS (2)
  1. ENBREL [Suspect]
     Indication: PSORIATIC ARTHROPATHY
     Dosage: 50 MG, QWK
     Route: 065
     Dates: start: 2005, end: 201302
  2. ENBREL [Suspect]
     Indication: PSORIASIS

REACTIONS (6)
  - Cough [Not Recovered/Not Resolved]
  - Dyspnoea exertional [Not Recovered/Not Resolved]
  - Cyanosis [Recovered/Resolved]
  - Dyspnoea [Not Recovered/Not Resolved]
  - Lung infection [Recovered/Resolved]
  - Psoriasis [Not Recovered/Not Resolved]
